FAERS Safety Report 7323966-9 (Version None)
Quarter: 2011Q1

REPORT INFORMATION
  Report Type: 
  Country: None (occurrence: None)
  Receive Date: 20110301
  Receipt Date: 20110222
  Transmission Date: 20110831
  Serious: Yes (Other)
  Sender: FDA-Public Use
  Company Number: B0702588A

PATIENT
  Age: 58 Year
  Sex: Male

DRUGS (2)
  1. AVODART [Suspect]
     Route: 048
     Dates: start: 20090101
  2. UNKNOWN DRUG [Concomitant]

REACTIONS (1)
  - HAEMATOCHEZIA [None]
